FAERS Safety Report 7013395-X (Version None)
Quarter: 2010Q3

REPORT INFORMATION
  Report Type: 
  Country: None (occurrence: None)
  Receive Date: 20100924
  Receipt Date: 20100923
  Transmission Date: 20110219
  Serious: Yes (Other)
  Sender: FDA-Public Use
  Company Number: IT-ROXANE LABORATORIES, INC.-2010-RO-01267RO

PATIENT
  Age: 14 Year
  Sex: Male

DRUGS (2)
  1. MERCAPTOPURINE [Suspect]
     Indication: CROHN'S DISEASE
     Dosage: 50 MG
     Route: 048
     Dates: start: 20010601
  2. ANTI-TNF [Suspect]
     Indication: DIARRHOEA
     Route: 042
     Dates: start: 20030401

REACTIONS (2)
  - DIARRHOEA [None]
  - MYELODYSPLASTIC SYNDROME [None]
